FAERS Safety Report 7876236-4 (Version None)
Quarter: 2011Q4

REPORT INFORMATION
  Report Type: 
  Country: None (occurrence: None)
  Receive Date: 20111031
  Receipt Date: 20111026
  Transmission Date: 20120403
  Serious: Yes (Hospitalization)
  Sender: FDA-Public Use
  Company Number: DE-BRISTOL-MYERS SQUIBB COMPANY-16200123

PATIENT

DRUGS (1)
  1. IPILIMUMAB [Suspect]
     Dosage: NO OF INF:4

REACTIONS (1)
  - OEDEMA PERIPHERAL [None]
